FAERS Safety Report 4426801-1 (Version None)
Quarter: 2004Q3

REPORT INFORMATION
  Report Type: 
  Country: None (occurrence: None)
  Receive Date: 20040816
  Receipt Date: 20030909
  Transmission Date: 20050211
  Serious: Yes (Death)
  Sender: FDA-Public Use
  Company Number: US-GLAXOSMITHKLINE-A0425164A

PATIENT
  Age: 14 Year
  Sex: Male
  Weight: 51.8 kg

DRUGS (2)
  1. ADVAIR DISKUS 100/50 [Suspect]
     Indication: ASTHMA
     Route: 055
     Dates: start: 20010821
  2. SINGULAIR [Concomitant]

REACTIONS (2)
  - ASTHMA [None]
  - CARDIAC ARREST [None]
